FAERS Safety Report 8283560-2 (Version None)
Quarter: 2012Q2

REPORT INFORMATION
  Report Type: 
  Country: None (occurrence: None)
  Receive Date: 20120413
  Receipt Date: 20110302
  Transmission Date: 20120825
  Serious: No
  Sender: FDA-Public Use
  Company Number: US-ASTRAZENECA-2011SE11471

PATIENT
  Sex: Female

DRUGS (6)
  1. CHOLESTEROL MED [Suspect]
     Route: 065
  2. ARICEPT [Suspect]
     Route: 065
  3. LUMIGAN [Suspect]
     Route: 065
  4. VITAMIN D [Suspect]
     Route: 065
  5. PROPOXYCHEL [Suspect]
     Route: 065
  6. NEXIUM [Suspect]
     Route: 048

REACTIONS (5)
  - BONE DISORDER [None]
  - AMNESIA [None]
  - SCIATICA [None]
  - FEELING HOT [None]
  - THINKING ABNORMAL [None]
